FAERS Safety Report 23990201 (Version 2)
Quarter: 2024Q3

REPORT INFORMATION
  Report Type: Spontaneous
  Country: US (occurrence: US)
  Receive Date: 20240619
  Receipt Date: 20240813
  Transmission Date: 20241016
  Serious: No
  Sender: MADRIGAL PHARMACEUTICALS
  Company Number: US-MADRIGAL PHARMACEUTICALS, INC-2024REZ0274

PATIENT

DRUGS (49)
  1. REZDIFFRA [Suspect]
     Active Substance: RESMETIROM
     Indication: Non-alcoholic steatohepatitis
     Dosage: 80 MILLIGRAM, QD
     Route: 048
     Dates: start: 20240520, end: 20240607
  2. REZDIFFRA [Suspect]
     Active Substance: RESMETIROM
     Dosage: UNK
     Dates: start: 20240628
  3. ACETAMINOPHEN [Concomitant]
     Active Substance: ACETAMINOPHEN
     Indication: Headache
     Dosage: 1000 MILLIGRAM, BID
     Route: 048
     Dates: start: 202405
  4. ACETAMINOPHEN [Concomitant]
     Active Substance: ACETAMINOPHEN
     Indication: Pain
  5. AJOVY [Concomitant]
     Active Substance: FREMANEZUMAB-VFRM
     Dosage: 225 MILLIGRAM, QM
     Route: 058
  6. ALBUTEROL SULFATE [Concomitant]
     Active Substance: ALBUTEROL SULFATE
     Dosage: 2 PUFFS, INHALE 2 PUFFS INTO THE LUNGS EVERY 6 (SBX) HOURS AS NEEDED
  7. AMMONIUM LACTATE [Concomitant]
     Active Substance: AMMONIUM LACTATE
     Indication: Skin irritation
     Dosage: APPLY 1 EACH, PRN
     Route: 061
  8. ASPIRIN [Concomitant]
     Active Substance: ASPIRIN
     Dosage: 1 DOSAGE FORM, QD
     Route: 048
  9. LIPITOR [Concomitant]
     Active Substance: ATORVASTATIN CALCIUM
     Dosage: 1 DOSAGE FORM, QD
     Route: 048
  10. LIORESAL [Concomitant]
     Active Substance: BACLOFEN
     Dosage: 10 MILLIGRAM, TID
     Route: 048
  11. BUMEX [Concomitant]
     Active Substance: BUMETANIDE
     Dosage: 2 MILLIGRAM, QD
     Route: 048
  12. ROCALTROL [Concomitant]
     Active Substance: CALCITRIOL
     Dosage: 2 CAPSULES IN THE AM AND 1 CAPSULE IN THE PM
     Route: 065
  13. CALCIUM CARBONATE\VITAMIN D [Concomitant]
     Active Substance: CALCIUM CARBONATE\VITAMIN D
     Indication: Hypovitaminosis
     Dosage: 2 DOSAGE FORM, QD
     Route: 048
  14. CALCIUM CARBONATE\VITAMIN D [Concomitant]
     Active Substance: CALCIUM CARBONATE\VITAMIN D
     Indication: Mineral deficiency
  15. RESTASIS [Concomitant]
     Active Substance: CYCLOSPORINE
     Dosage: 1 DROP
     Route: 047
  16. VOLTAREN [Concomitant]
     Active Substance: DICLOFENAC SODIUM
     Dosage: APPLY 4 G TOPICALLY 4 TIMES, QID
     Route: 061
  17. Biotene dry mouth [Concomitant]
     Dosage: TAKE 15 ML AND SWISH IN THE MOUTH FOR 30 SECONDS AND THEN SPIT OUT, MAY BE USED UP TO 5TIMES A DAY
  18. CYMBALTA [Concomitant]
     Active Substance: DULOXETINE HYDROCHLORIDE
     Dosage: 90 MILLIGRAM (1 CAPSULE BY MOUTH DAILY TAKE ALONG WITH 30MG CAPSULE TO EQUAL TOTAL OF 90MG DAILY), Q
     Route: 048
  19. EPINEPHRINE [Concomitant]
     Active Substance: EPINEPHRINE
     Indication: Anaphylactic reaction
     Dosage: 0.3 MILLILITER, PRN
     Route: 030
  20. ERYTHROMYCIN [Concomitant]
     Active Substance: ERYTHROMYCIN
     Dosage: PLACE INTO BOTH EYES, BID
     Route: 047
  21. ZETIA [Concomitant]
     Active Substance: EZETIMIBE
     Dosage: 10 MILLIGRAM, QD (NIGHTLY AT BEDTIME)
     Route: 048
  22. FLONASE [Concomitant]
     Active Substance: FLUTICASONE PROPIONATE
     Dosage: 1 SPRAY, BID
  23. ADVAIR HFA [Concomitant]
     Active Substance: FLUTICASONE PROPIONATE\SALMETEROL XINAFOATE
     Dosage: INHALE 2 PUFFS BY MOUTH, BID
     Route: 048
  24. NEURONTIN [Concomitant]
     Active Substance: GABAPENTIN
     Indication: Pain
     Dosage: 2 DOSAGE FORM, PRN (NIGHTLY)
     Route: 048
  25. OASIS TEARS [Concomitant]
     Active Substance: GLYCERIN
     Dosage: 1 DROP, PRN (4 TIMES DAILY AS NEEDED)
     Route: 047
  26. ULTRAVATE [Concomitant]
     Active Substance: HALOBETASOL PROPIONATE
     Dosage: UNK UNK, QD
     Route: 061
  27. CORTEF [Concomitant]
     Active Substance: HYDROCORTISONE
     Dosage: 10 MILLIGRAM, BID
     Route: 048
  28. HYDROCORTISONE SODIUM SUCCINATE [Concomitant]
     Active Substance: HYDROCORTISONE SODIUM SUCCINATE
     Dosage: 2 MILLILITER, PRN
     Route: 030
  29. NIZORAL [Concomitant]
     Active Substance: KETOCONAZOLE
     Dosage: UNK, BID (X14 DAYS)
     Route: 061
  30. SYNTHROID [Concomitant]
     Active Substance: LEVOTHYROXINE SODIUM
     Dosage: 1 DOSAGE FORM, QD (EVERY MORNING)
     Route: 048
  31. LIDODERM [Concomitant]
     Active Substance: LIDOCAINE
     Dosage: 1 DOSAGE FORM, Q12H (PLACE 1 PATCH ONTO THE SKIN DAILY FOR 30 DAYS, REMOVE AND DISCARD PATCH WITHIN
     Route: 061
  32. CLARITIN [Concomitant]
     Active Substance: LORATADINE
     Indication: Hypersensitivity
     Dosage: 1 DOSAGE FORM, QD (AS NEEDED)
     Route: 048
  33. COZAAR [Concomitant]
     Active Substance: LOSARTAN POTASSIUM
     Dosage: 1 DOSAGE FORM, QD
     Route: 048
  34. AMITIZA [Concomitant]
     Active Substance: LUBIPROSTONE
     Indication: Constipation
     Dosage: 1 DOSAGE FORM, BID (WITH MEALS)
     Route: 048
  35. MAGNESIUM OXIDE [Concomitant]
     Active Substance: MAGNESIUM OXIDE
     Dosage: 1 DOSAGE FORM, QD
     Route: 048
  36. MYCOSTATIN [Concomitant]
     Active Substance: NYSTATIN
     Dosage: UNK, PRN
     Route: 061
  37. MYCOSTATIN [Concomitant]
     Active Substance: NYSTATIN
     Dosage: UNK, TID
     Route: 061
  38. PRILOSEC [Concomitant]
     Active Substance: OMEPRAZOLE MAGNESIUM
     Dosage: 1 DOSAGE FORM, QD
     Route: 048
  39. ZOFRAN [Concomitant]
     Active Substance: ONDANSETRON HYDROCHLORIDE
     Indication: Nausea
     Dosage: 1 DOSAGE FORM, Q8H (EVERY 8 HOURS AS NEEDED)
     Route: 048
  40. AFRIN [Concomitant]
     Active Substance: OXYMETAZOLINE
     Dosage: UNK, PRN (ONCE, DAILY AS NEEDED)
     Route: 045
  41. POTASSIUM CHLORIDE [Concomitant]
     Active Substance: POTASSIUM CHLORIDE
     Dosage: 40 MILLILITER (106.66 MEQ TOTAL), TID
     Route: 048
  42. METAMUCIL [Concomitant]
     Active Substance: PLANTAGO SEED
     Dosage: 1 DOSAGE FORM, QD
     Route: 048
  43. SILVER SULFADIAZINE [Concomitant]
     Active Substance: SILVER SULFADIAZINE
     Dosage: UNK, BIW
     Route: 061
  44. ALDACTONE [Concomitant]
     Active Substance: SPIRONOLACTONE
     Dosage: 2 DOSAGE FORM (50MG TOTAL), QD
     Route: 048
  45. ACTEMRA [Concomitant]
     Active Substance: TOCILIZUMAB
     Dosage: UNK, QW
     Route: 058
  46. KENALOG [Concomitant]
     Active Substance: TRIAMCINOLONE ACETONIDE
     Dosage: APPLY TO THE AFFECTED AREAS UNDER THE BREAST AND ABDOMINAL FOLD 1-2 TIMES A DAY 3 DAYS
     Route: 061
  47. ERGOCALCIFEROL [Concomitant]
     Active Substance: ERGOCALCIFEROL
     Dosage: 1 DOSAGE FORM, TIW
     Route: 048
  48. CHOLECALCIFEROL [Concomitant]
     Active Substance: CHOLECALCIFEROL
     Indication: Hypovitaminosis
     Dosage: 4 DOSAGE FORM (20000 UNITS TOTAL), QD
     Route: 048
  49. CHOLECALCIFEROL [Concomitant]
     Active Substance: CHOLECALCIFEROL
     Indication: Mineral deficiency

REACTIONS (1)
  - Blood bilirubin increased [Unknown]

NARRATIVE: CASE EVENT DATE: 20240603
